FAERS Safety Report 9216159 (Version 2)
Quarter: 2013Q2

REPORT INFORMATION
  Report Type: Spontaneous
  Country: JP (occurrence: JP)
  Receive Date: 20130408
  Receipt Date: 20130415
  Transmission Date: 20140414
  Serious: Yes (Other)
  Sender: FDA-Public Use
  Company Number: JP-AMGEN-JPNSP2013023418

PATIENT
  Age: 70 Year
  Sex: Male

DRUGS (6)
  1. MIMPARA [Suspect]
     Indication: HYPERPARATHYROIDISM SECONDARY
     Dosage: 25 MG, QD
     Route: 048
     Dates: start: 201211
  2. NEXIUM [Concomitant]
     Dosage: 20 MG, QD
     Route: 048
  3. FOSRENOL [Concomitant]
     Dosage: 250 MG, TID
     Route: 048
  4. MUCOSTA [Concomitant]
     Dosage: 100 MG, TID
     Route: 048
  5. FRANDOL [Concomitant]
     Dosage: 40 MG, QD
     Route: 062
  6. SIGMART [Concomitant]
     Dosage: 5 MG, TID
     Route: 048

REACTIONS (1)
  - Gastrointestinal haemorrhage [Recovered/Resolved]
